FAERS Safety Report 17806538 (Version 1)
Quarter: 2020Q2

REPORT INFORMATION
  Report Type: Report from Study
  Country: US (occurrence: US)
  Receive Date: 20200520
  Receipt Date: 20200520
  Transmission Date: 20200714
  Serious: Yes (Other)
  Sender: FDA-Public Use
  Company Number: US-GILEAD-2020-0467751

PATIENT
  Age: 36 Year
  Sex: Female

DRUGS (1)
  1. AZTREONAM LYSINE [Suspect]
     Active Substance: AZTREONAM LYSINE
     Indication: CYSTIC FIBROSIS LUNG
     Dosage: 75 MG, TID, FOR 28 DAYS ON AND 28 DAYS OFF
     Route: 055

REACTIONS (3)
  - Pregnancy [Unknown]
  - Premature labour [Unknown]
  - Pre-eclampsia [Unknown]
